FAERS Safety Report 24062872 (Version 1)
Quarter: 2024Q3

REPORT INFORMATION
  Report Type: Spontaneous
  Country: US (occurrence: US)
  Receive Date: 20240709
  Receipt Date: 20240709
  Transmission Date: 20241017
  Serious: Yes (Hospitalization, Other)
  Sender: NOVITIUM PHARMA
  Company Number: US-NOVITIUMPHARMA-2024USNVP01164

PATIENT
  Age: 30 Year
  Sex: Female

DRUGS (9)
  1. PREDNISONE [Suspect]
     Active Substance: PREDNISONE
     Indication: Blau syndrome
  2. SULFAMETHOXAZOLE\TRIMETHOPRIM [Suspect]
     Active Substance: SULFAMETHOXAZOLE\TRIMETHOPRIM
     Indication: Evidence based treatment
  3. UPADACITINIB [Concomitant]
     Active Substance: UPADACITINIB
     Indication: Blau syndrome
  4. METHOTREXATE [Concomitant]
     Active Substance: METHOTREXATE
     Indication: Blau syndrome
  5. VANCOMYCIN [Concomitant]
     Active Substance: VANCOMYCIN
     Indication: Evidence based treatment
  6. MICAFUNGIN [Concomitant]
     Active Substance: MICAFUNGIN SODIUM
     Indication: Evidence based treatment
  7. MEROPENEM [Concomitant]
     Active Substance: MEROPENEM
     Indication: Evidence based treatment
  8. AZITHROMYCIN [Concomitant]
     Active Substance: AZITHROMYCIN
     Indication: Evidence based treatment
  9. ATOVAQUONE [Concomitant]
     Active Substance: ATOVAQUONE
     Indication: Evidence based treatment

REACTIONS (2)
  - Pneumocystis jirovecii pneumonia [Unknown]
  - Hypersensitivity [Unknown]
